FAERS Safety Report 9551370 (Version 2)
Quarter: 2013Q4

REPORT INFORMATION
  Report Type: Spontaneous
  Country: BR (occurrence: BR)
  Receive Date: 20130925
  Receipt Date: 20131120
  Transmission Date: 20140711
  Serious: Yes (Other)
  Sender: FDA-Public Use
  Company Number: BR-RANBAXY-2013R5-73225

PATIENT
  Age: 29 Year
  Sex: Male
  Weight: 142 kg

DRUGS (7)
  1. FLUOXETINE [Suspect]
     Indication: ANXIETY
     Dosage: 20 MG, BID
     Route: 048
     Dates: start: 20130830
  2. FLUOXETINE [Suspect]
     Indication: IRRITABILITY
  3. FLUOXETINE [Suspect]
     Indication: NERVOUSNESS
  4. CAPTOPRIL [Concomitant]
     Indication: HYPERTENSION
     Dosage: 25 MG, BID
     Route: 065
  5. LOSARTAN [Concomitant]
     Indication: HYPERTENSION
     Dosage: 50 MG, BID
     Route: 065
  6. METFORMIN [Concomitant]
     Indication: DIABETES MELLITUS
     Dosage: 850 MG, BID
     Route: 065
  7. VICTOZA [Concomitant]
     Indication: DIABETES MELLITUS
     Dosage: UNK, QD
     Route: 065
     Dates: start: 201303

REACTIONS (5)
  - Drug ineffective [Recovered/Resolved]
  - Nervousness [Recovered/Resolved]
  - Anxiety [Recovered/Resolved]
  - Irritability [Recovered/Resolved]
  - Diabetes mellitus [Recovered/Resolved]
